FAERS Safety Report 18045319 (Version 2)
Quarter: 2022Q2

REPORT INFORMATION
  Report Type: Spontaneous
  Country: US (occurrence: US)
  Receive Date: 20200720
  Receipt Date: 20220616
  Transmission Date: 20220721
  Serious: No
  Sender: FDA-Public Use
  Company Number: US-JNJFOC-20200726381

PATIENT
  Sex: Male

DRUGS (5)
  1. RISPERDAL [Suspect]
     Active Substance: RISPERIDONE
     Indication: Anger
     Route: 048
     Dates: start: 2001, end: 2011
  2. RISPERDAL [Suspect]
     Active Substance: RISPERIDONE
     Indication: Aggression
  3. RISPERDAL [Suspect]
     Active Substance: RISPERIDONE
     Indication: Mood swings
  4. RISPERDAL [Suspect]
     Active Substance: RISPERIDONE
     Indication: Irritability
  5. RISPERIDONE [Suspect]
     Active Substance: RISPERIDONE
     Indication: Product used for unknown indication
     Route: 048
     Dates: start: 2001, end: 2011

REACTIONS (2)
  - Emotional disorder [Unknown]
  - Gynaecomastia [Unknown]
